FAERS Safety Report 8598529-8 (Version None)
Quarter: 2012Q3

REPORT INFORMATION
  Report Type: 
  Country: None (occurrence: None)
  Receive Date: 20120816
  Receipt Date: 20120808
  Transmission Date: 20120928
  Serious: Yes (Hospitalization)
  Sender: FDA-Public Use
  Company Number: US-BAYER-2011-074992

PATIENT
  Age: 36 Year
  Sex: Female
  Weight: 61.224 kg

DRUGS (4)
  1. YAZ [Suspect]
  2. QVAR 40 [Concomitant]
     Dosage: UNK
     Dates: start: 20020101
  3. YAZ [Suspect]
     Indication: PREMENSTRUAL SYNDROME
     Dosage: UNK
     Dates: start: 20000101
  4. ALBUTEROL [Concomitant]
     Dosage: UNK UNK, PRN
     Dates: start: 20020101

REACTIONS (3)
  - INJURY [None]
  - GALLBLADDER INJURY [None]
  - PAIN [None]
